FAERS Safety Report 7735547-3 (Version None)
Quarter: 2011Q3

REPORT INFORMATION
  Report Type: 
  Country: None (occurrence: None)
  Receive Date: 20110907
  Receipt Date: 20110823
  Transmission Date: 20111222
  Serious: Yes (Hospitalization, Other)
  Sender: FDA-Public Use
  Company Number: CA-ARROW GEN-2011-13873

PATIENT
  Age: 66 Year
  Sex: Female

DRUGS (2)
  1. PAROXETINE HYDROCHLORIDE [Suspect]
     Indication: PRODUCT USED FOR UNKNOWN INDICATION
  2. MIRTAZAPINE [Suspect]
     Indication: PARANOIA

REACTIONS (4)
  - SEROTONIN SYNDROME [None]
  - CONFUSIONAL STATE [None]
  - MOBILITY DECREASED [None]
  - SLEEP DISORDER [None]
